FAERS Safety Report 7775304-5 (Version None)
Quarter: 2011Q3

REPORT INFORMATION
  Report Type: 
  Country: None (occurrence: None)
  Receive Date: 20110923
  Receipt Date: 20110913
  Transmission Date: 20111222
  Serious: Yes (Death, Other)
  Sender: FDA-Public Use
  Company Number: GR-PFIZER INC-2011224226

PATIENT
  Age: 39 Year
  Sex: Male

DRUGS (8)
  1. MIRTAZAPINE [Suspect]
  2. DIAZEPAM [Suspect]
  3. BIPERIDEN [Suspect]
  4. SERTRALINE HYDROCHLORIDE [Suspect]
  5. CHLORPROMAZINE [Suspect]
  6. TRAZODONE HCL [Suspect]
  7. LEVOMEPROMAZINE [Suspect]
  8. CITALOPRAM [Suspect]

REACTIONS (1)
  - POISONING [None]
